FAERS Safety Report 12092698 (Version 1)
Quarter: 2016Q1

REPORT INFORMATION
  Report Type: Spontaneous
  Country: US (occurrence: None)
  Receive Date: 20160218
  Receipt Date: 20160218
  Transmission Date: 20160526
  Serious: Yes (Death)
  Sender: FDA-Public Use
  Company Number: None

PATIENT
  Age: 74 Year
  Sex: Female

DRUGS (1)
  1. MOZOBIL [Suspect]
     Active Substance: PLERIXAFOR
     Indication: PANCREATIC CARCINOMA
     Dosage: 20MG 4 DAYS Q MONTH SUBCUTANEOUS
     Route: 058
     Dates: start: 201601

REACTIONS (1)
  - Death [None]

NARRATIVE: CASE EVENT DATE: 201602
